FAERS Safety Report 24140126 (Version 1)
Quarter: 2024Q3

REPORT INFORMATION
  Report Type: Spontaneous
  Country: PL (occurrence: PL)
  Receive Date: 20240726
  Receipt Date: 20240726
  Transmission Date: 20241017
  Serious: Yes (Other)
  Sender: GLAXOSMITHKLINE
  Company Number: PL-GLAXOSMITHKLINE-PL2024GSK090885

PATIENT

DRUGS (2)
  1. ACITRETIN [Suspect]
     Active Substance: ACITRETIN
     Indication: Pityriasis rubra pilaris
     Dosage: 10 MG, QD
     Dates: start: 20221220
  2. ACITRETIN [Suspect]
     Active Substance: ACITRETIN
     Dosage: 25 MG, QD, INCREASING DOSE
     Dates: start: 202212, end: 202305

REACTIONS (1)
  - Hypogammaglobulinaemia [Recovered/Resolved]
